FAERS Safety Report 9631447 (Version 1)
Quarter: 2013Q4

REPORT INFORMATION
  Report Type: Spontaneous
  Country: GB (occurrence: None)
  Receive Date: 20131015
  Receipt Date: 20131015
  Transmission Date: 20140711
  Serious: Yes (Other)
  Sender: FDA-Public Use
  Company Number: AUR-APL-2013-08291

PATIENT
  Age: 57 Year
  Sex: Male

DRUGS (3)
  1. RIBAVIRIN [Suspect]
     Indication: HEPATITIS C
     Dosage: (2 IN 1 D),  ORAL
     Route: 048
     Dates: start: 20121114
  2. TELAPREVIR (TELAPREVIR) [Suspect]
     Indication: HEPATITIS C
     Dosage: 2250 MG  (750 MG,  3 IN 1 D),  ORAL
     Route: 048
     Dates: start: 20121114
  3. PEGINTERFERON ALFA-2B (PEGINTERFERON ALFA-2B) [Suspect]
     Indication: HEPATITIS C
     Dosage: SUBCUTANEOUS
     Route: 058
     Dates: start: 20121114

REACTIONS (9)
  - Anaemia [None]
  - Proctalgia [None]
  - Rash [None]
  - Anal pruritus [None]
  - Mouth ulceration [None]
  - Myalgia [None]
  - Influenza like illness [None]
  - Urinary tract infection [None]
  - Fatigue [None]
